FAERS Safety Report 4868467-2 (Version None)
Quarter: 2005Q4

REPORT INFORMATION
  Report Type: 
  Country: None (occurrence: None)
  Receive Date: 20051223
  Receipt Date: 20051215
  Transmission Date: 20060501
  Serious: Yes (Other)
  Sender: FDA-Public Use
  Company Number: 2005169008

PATIENT
  Sex: Male
  Weight: 95.2554 kg

DRUGS (1)
  1. CELEBREX [Suspect]
     Indication: MUSCULOSKELETAL PAIN
     Dosage: (200 MG, UNKNOWN), ORAL
     Route: 048

REACTIONS (7)
  - ARTHROPATHY [None]
  - ASTHENIA [None]
  - BODY HEIGHT DECREASED [None]
  - CARDIAC FLUTTER [None]
  - DIFFICULTY IN WALKING [None]
  - EXTRASYSTOLES [None]
  - INADEQUATE ANALGESIA [None]
